FAERS Safety Report 11573799 (Version 9)
Quarter: 2017Q3

REPORT INFORMATION
  Report Type: Report from Study
  Country: US (occurrence: US)
  Receive Date: 20150929
  Receipt Date: 20170810
  Transmission Date: 20171127
  Serious: Yes (Hospitalization, Other)
  Sender: FDA-Public Use
  Company Number: US-ACTELION-A-NJ2015-124524

PATIENT
  Age: 57 Year
  Sex: Female
  Weight: 97.52 kg

DRUGS (5)
  1. INSULIN [Concomitant]
     Active Substance: INSULIN NOS
  2. SILDENAFIL. [Concomitant]
     Active Substance: SILDENAFIL
  3. CARDIZEM LA [Concomitant]
     Active Substance: DILTIAZEM HYDROCHLORIDE
  4. OPSUMIT [Suspect]
     Active Substance: MACITENTAN
     Indication: PULMONARY ARTERIAL HYPERTENSION
     Dosage: 10 MG, QD
     Route: 048
  5. OPSUMIT [Suspect]
     Active Substance: MACITENTAN
     Dosage: 10 MG, QD
     Route: 048
     Dates: start: 20150902

REACTIONS (10)
  - Asthma [Unknown]
  - Neurostimulator removal [Unknown]
  - Blood glucose decreased [Recovered/Resolved]
  - Stent placement [Unknown]
  - Dyspnoea [Unknown]
  - Chest pain [Unknown]
  - Tremor [Unknown]
  - Blood glucose increased [Recovering/Resolving]
  - Sinusitis [Unknown]
  - Epistaxis [Unknown]

NARRATIVE: CASE EVENT DATE: 20160229
